FAERS Safety Report 8601210-X (Version None)
Quarter: 2012Q3

REPORT INFORMATION
  Report Type: 
  Country: None (occurrence: None)
  Receive Date: 20120817
  Receipt Date: 20120809
  Transmission Date: 20120928
  Serious: Yes (Other)
  Sender: FDA-Public Use
  Company Number: PHEH2012US016027

PATIENT
  Sex: Female

DRUGS (6)
  1. NAFCILLIN [Concomitant]
  2. PREDNISOLONE [Concomitant]
  3. PROPOFOL [Concomitant]
  4. PRECEDEX [Concomitant]
  5. BENADRYL [Concomitant]
  6. TRILEPTAL [Suspect]
     Indication: GRAND MAL CONVULSION
     Dosage: 150 MG EVERY MORNING AND 300 MG EVERY EVENING
     Dates: start: 20101117

REACTIONS (27)
  - LIP EROSION [None]
  - VAGINAL LESION [None]
  - COUGH [None]
  - ERYTHEMA [None]
  - SWELLING FACE [None]
  - MOUTH ULCERATION [None]
  - ORAL MUCOSA EROSION [None]
  - EYE DISCHARGE [None]
  - PETECHIAE [None]
  - RASH [None]
  - OROPHARYNGEAL PAIN [None]
  - DYSURIA [None]
  - PYREXIA [None]
  - DYSPHAGIA [None]
  - RASH MACULO-PAPULAR [None]
  - BLISTER [None]
  - SKIN LESION [None]
  - RHINITIS [None]
  - DERMATITIS [None]
  - RESPIRATORY DISTRESS [None]
  - LIVER FUNCTION TEST ABNORMAL [None]
  - EYE SWELLING [None]
  - ALOPECIA [None]
  - EYE PAIN [None]
  - TRANSAMINASES INCREASED [None]
  - VAGINAL DISCHARGE [None]
  - STEVENS-JOHNSON SYNDROME [None]
